FAERS Safety Report 5391889-0 (Version None)
Quarter: 2007Q3

REPORT INFORMATION
  Report Type: 
  Country: None (occurrence: None)
  Receive Date: 20070718
  Receipt Date: 20070709
  Transmission Date: 20080115
  Serious: Yes (Hospitalization, Other)
  Sender: FDA-Public Use
  Company Number: 07072177

PATIENT
  Age: 73 Year
  Sex: Female

DRUGS (3)
  1. ETODOLAC [Suspect]
     Indication: RHEUMATOID ARTHRITIS
     Dosage: ORAL
     Route: 048
  2. OXYTROL [Suspect]
     Indication: HYPERTONIC BLADDER
     Dosage: OTHER
     Route: 050
  3. DILTIAZEM [Suspect]
     Indication: HYPERTENSION
     Dosage: ORAL
     Route: 048

REACTIONS (3)
  - FALL [None]
  - OEDEMA PERIPHERAL [None]
  - THROMBOSIS [None]
